FAERS Safety Report 8487941-3 (Version None)
Quarter: 2012Q3

REPORT INFORMATION
  Report Type: 
  Country: None (occurrence: None)
  Receive Date: 20120705
  Receipt Date: 20120626
  Transmission Date: 20120928
  Serious: Yes (Other)
  Sender: FDA-Public Use
  Company Number: PHHY2012JP057272

PATIENT
  Sex: Male

DRUGS (7)
  1. GASMOTIN [Concomitant]
     Indication: NAUSEA
     Dosage: 15 MG, UNK
     Route: 048
     Dates: start: 20100430, end: 20100701
  2. URSO 250 [Concomitant]
     Dosage: 600 MG,
     Dates: start: 20100203
  3. DEPAS [Concomitant]
     Indication: DEPRESSION
     Dosage: 3 MG, UNK
     Dates: start: 20100521, end: 20100812
  4. TASIGNA [Suspect]
     Indication: ACUTE LYMPHOCYTIC LEUKAEMIA
     Dosage: 800 MG, DAILY
     Route: 048
     Dates: start: 20100129
  5. LANSOPRAZOLE [Concomitant]
     Indication: NAUSEA
     Dosage: 15 MG, UNK
     Route: 048
     Dates: start: 20100430
  6. ROHYPNOL [Concomitant]
     Indication: DEPRESSION
     Dosage: 2 MG, UNK
     Route: 048
     Dates: start: 20100723
  7. MUCOSTA [Concomitant]
     Indication: NAUSEA
     Dosage: 300 MG, UNK
     Dates: start: 20091222

REACTIONS (1)
  - BLAST CELLS [None]
